FAERS Safety Report 24753077 (Version 1)
Quarter: 2024Q4

REPORT INFORMATION
  Report Type: Report from Study
  Country: GB (occurrence: GB)
  Receive Date: 20241219
  Receipt Date: 20241219
  Transmission Date: 20250115
  Serious: Yes (Other)
  Sender: ROCHE
  Company Number: GB-ROCHE-3484439

PATIENT
  Sex: Female

DRUGS (1)
  1. TOCILIZUMAB [Suspect]
     Active Substance: TOCILIZUMAB
     Indication: Product used for unknown indication
     Dosage: FREQUENCY TEXT:1
     Route: 058
     Dates: start: 202205

REACTIONS (3)
  - Feeling abnormal [Unknown]
  - Lower respiratory tract infection [Unknown]
  - Terminal state [Unknown]
